FAERS Safety Report 15461498 (Version 1)
Quarter: 2018Q4

REPORT INFORMATION
  Report Type: Spontaneous
  Country: US (occurrence: US)
  Receive Date: 20181003
  Receipt Date: 20181003
  Transmission Date: 20190204
  Serious: No
  Sender: FDA-Public Use
  Company Number: US-009507513-1809USA010550

PATIENT
  Age: 55 Year
  Sex: Female

DRUGS (5)
  1. PROGESTERONE. [Concomitant]
     Active Substance: PROGESTERONE
  2. BELSOMRA [Suspect]
     Active Substance: SUVOREXANT
     Indication: INSOMNIA
     Dosage: 1 X 10 MG TABLET 1 DAILY
     Route: 048
     Dates: start: 20180920
  3. ESTROGEN NOS [Concomitant]
     Active Substance: ESTROGENS
  4. ROSUVASTATIN. [Concomitant]
     Active Substance: ROSUVASTATIN
  5. WELLBUTRIN [Concomitant]
     Active Substance: BUPROPION HYDROCHLORIDE

REACTIONS (3)
  - Drug effect delayed [Not Recovered/Not Resolved]
  - Abnormal dreams [Not Recovered/Not Resolved]
  - Middle insomnia [Not Recovered/Not Resolved]

NARRATIVE: CASE EVENT DATE: 20180920
